FAERS Safety Report 5288359-7 (Version None)
Quarter: 2007Q2

REPORT INFORMATION
  Report Type: 
  Country: None (occurrence: None)
  Receive Date: 20070405
  Receipt Date: 20070402
  Transmission Date: 20071010
  Serious: Yes (Disabling, Other)
  Sender: FDA-Public Use
  Company Number: GB-BRISTOL-MYERS SQUIBB COMPANY-13607262

PATIENT
  Age: 32 Year
  Sex: Male
  Weight: 78 kg

DRUGS (3)
  1. SUSTIVA [Suspect]
     Indication: HIV INFECTION
     Dosage: REDUCED TO 400MG DAILY ON 10-NOV-2006
     Route: 048
     Dates: start: 20060928
  2. TRUVADA [Concomitant]
     Dates: start: 20060928
  3. CO-TRIMOXAZOLE [Concomitant]
     Dates: start: 20050901

REACTIONS (4)
  - DIZZINESS [None]
  - DRUG LEVEL INCREASED [None]
  - NERVOUS SYSTEM DISORDER [None]
  - SLEEP DISORDER [None]
